FAERS Safety Report 9232490 (Version 1)
Quarter: 2013Q2

REPORT INFORMATION
  Report Type: Spontaneous
  Country: US (occurrence: US)
  Receive Date: 20130416
  Receipt Date: 20130416
  Transmission Date: 20140414
  Serious: No
  Sender: FDA-Public Use
  Company Number: US-BIOGENIDEC-2013BI032672

PATIENT
  Age: 47 Year
  Sex: Female

DRUGS (3)
  1. TYSABRI [Suspect]
     Indication: MULTIPLE SCLEROSIS
     Route: 042
     Dates: start: 20121127
  2. AVONEX [Concomitant]
     Indication: MULTIPLE SCLEROSIS
     Route: 030
     Dates: start: 20091203
  3. AVONEX [Concomitant]
     Indication: MULTIPLE SCLEROSIS
     Route: 030
     Dates: start: 20120922

REACTIONS (4)
  - Vein disorder [Not Recovered/Not Resolved]
  - Poor venous access [Recovered/Resolved]
  - Fatigue [Recovered/Resolved]
  - Blood pressure decreased [Recovered/Resolved]
